FAERS Safety Report 24035393 (Version 1)
Quarter: 2024Q3

REPORT INFORMATION
  Report Type: Spontaneous
  Country: GB (occurrence: GB)
  Receive Date: 20240701
  Receipt Date: 20240701
  Transmission Date: 20241017
  Serious: Yes (Hospitalization, Other)
  Sender: JUBILANT
  Company Number: None

PATIENT
  Sex: Female

DRUGS (1)
  1. OLANZAPINE [Suspect]
     Active Substance: OLANZAPINE
     Indication: Product used for unknown indication
     Dosage: 40 MG, UNK
     Route: 065

REACTIONS (6)
  - Hospitalisation [Unknown]
  - Psychotic disorder [Unknown]
  - Delusion [Unknown]
  - Therapeutic response decreased [Unknown]
  - Disturbance in attention [Unknown]
  - Emotional distress [Unknown]
